FAERS Safety Report 8135246-2 (Version None)
Quarter: 2012Q1

REPORT INFORMATION
  Report Type: 
  Country: None (occurrence: None)
  Receive Date: 20120214
  Receipt Date: 20120201
  Transmission Date: 20120608
  Serious: Yes (Hospitalization)
  Sender: FDA-Public Use
  Company Number: IT-ROCHE-1035997

PATIENT
  Sex: Male

DRUGS (9)
  1. INSULIN [Concomitant]
     Indication: DIABETES MELLITUS
     Route: 058
  2. LANTUS [Concomitant]
     Indication: DIABETES MELLITUS
     Route: 058
  3. RANIDIL [Concomitant]
     Indication: PROPHYLAXIS AGAINST GASTROINTESTINAL ULCER
     Route: 041
     Dates: start: 20111020, end: 20111229
  4. MABTHERA [Suspect]
     Indication: FOLLICLE CENTRE LYMPHOMA, FOLLICULAR GRADE I, II, III STAGE III
     Route: 041
     Dates: start: 20111020, end: 20111229
  5. CYCLOPHOSPHAMIDE [Concomitant]
     Route: 041
     Dates: start: 20111020, end: 20111229
  6. ADRIABLASTINE [Concomitant]
     Route: 041
     Dates: start: 20111020, end: 20111229
  7. VINCRISTINE [Concomitant]
     Route: 041
     Dates: start: 20111020, end: 20111229
  8. METHYLPREDNISOLONE [Concomitant]
     Indication: ANAPHYLAXIS PROPHYLAXIS
     Route: 041
     Dates: start: 20111020, end: 20111229
  9. ALLOPURINOL [Concomitant]
     Indication: HYPERURICAEMIA
     Route: 048

REACTIONS (2)
  - INTERSTITIAL LUNG DISEASE [None]
  - FLUID RETENTION [None]
